FAERS Safety Report 5306150-X (Version None)
Quarter: 2007Q2

REPORT INFORMATION
  Report Type: 
  Country: None (occurrence: None)
  Receive Date: 20070424
  Receipt Date: 20070423
  Transmission Date: 20071010
  Serious: Yes (Other)
  Sender: FDA-Public Use
  Company Number: US-GLAXOSMITHKLINE-A0647524A

PATIENT
  Age: 86 Year
  Sex: Male

DRUGS (6)
  1. CITRUCEL SUGAR-FREE SUSPENSION ORANGE [Suspect]
     Indication: CHANGE OF BOWEL HABIT
     Route: 048
  2. GLUCOSAMINE CHONDROITIN [Concomitant]
  3. AMITRIPTYLINE HCL [Concomitant]
  4. MUCINEX [Concomitant]
  5. MULTIPLE VITAMIN [Concomitant]
  6. SYNTHROID [Concomitant]

REACTIONS (8)
  - ABDOMINAL DISTENSION [None]
  - ABNORMAL FAECES [None]
  - BOWEL MOVEMENT IRREGULARITY [None]
  - DEFAECATION URGENCY [None]
  - FAECAL INCONTINENCE [None]
  - FAECES DISCOLOURED [None]
  - FREQUENT BOWEL MOVEMENTS [None]
  - INTESTINAL FUNCTIONAL DISORDER [None]
